FAERS Safety Report 20078117 (Version 2)
Quarter: 2021Q4

REPORT INFORMATION
  Report Type: Spontaneous
  Country: JP (occurrence: JP)
  Receive Date: 20211117
  Receipt Date: 20211224
  Transmission Date: 20220303
  Serious: Yes (Other)
  Sender: FDA-Public Use
  Company Number: JP-MSD-M2021-23782

PATIENT
  Age: 77 Year
  Sex: Female

DRUGS (6)
  1. KEYTRUDA [Suspect]
     Active Substance: PEMBROLIZUMAB
     Indication: Transitional cell carcinoma
     Dosage: 200 MILLIGRAM, Q3W
     Route: 041
     Dates: start: 20210603, end: 2021
  2. KEYTRUDA [Suspect]
     Active Substance: PEMBROLIZUMAB
     Dosage: 200 MILLIGRAM, Q3W
     Route: 041
     Dates: start: 20211007, end: 2021
  3. PREDONINE [Suspect]
     Active Substance: PREDNISOLONE
     Indication: Polymyalgia rheumatica
     Dosage: 10 MILLIGRAM
     Route: 065
     Dates: start: 2021, end: 2021
  4. PREDONINE [Suspect]
     Active Substance: PREDNISOLONE
     Dosage: 15 MILLIGRAM
     Route: 065
     Dates: start: 2021, end: 2021
  5. PREDONINE [Suspect]
     Active Substance: PREDNISOLONE
     Dosage: 9 MILLIGRAM
     Route: 065
     Dates: start: 2021, end: 2021
  6. PREDONINE [Suspect]
     Active Substance: PREDNISOLONE
     Dosage: 8 MILLIGRAM
     Route: 065
     Dates: start: 2021

REACTIONS (3)
  - Polymyalgia rheumatica [Not Recovered/Not Resolved]
  - Diabetes mellitus inadequate control [Not Recovered/Not Resolved]
  - Malignant neoplasm progression [Unknown]

NARRATIVE: CASE EVENT DATE: 20210101
